FAERS Safety Report 22905546 (Version 6)
Quarter: 2024Q1

REPORT INFORMATION
  Report Type: Report from Study
  Country: CA (occurrence: CA)
  Receive Date: 20230905
  Receipt Date: 20240304
  Transmission Date: 20240410
  Serious: Yes (Hospitalization, Other)
  Sender: FDA-Public Use
  Company Number: CA-TAKEDA-2023TUS084474

PATIENT
  Age: 39 Year
  Sex: Female

DRUGS (5)
  1. VEDOLIZUMAB [Suspect]
     Active Substance: VEDOLIZUMAB
     Indication: Colitis ulcerative
     Dosage: 300 MILLIGRAM
     Route: 042
     Dates: start: 20230124
  2. VEDOLIZUMAB [Suspect]
     Active Substance: VEDOLIZUMAB
     Dosage: 300 MILLIGRAM, Q4WEEKS
     Route: 042
     Dates: start: 20230731
  3. VEDOLIZUMAB [Suspect]
     Active Substance: VEDOLIZUMAB
     Dosage: 300 MILLIGRAM, Q4WEEKS
     Route: 042
  4. BILAN [Concomitant]
     Dosage: UNK
  5. Salofalk [Concomitant]
     Dosage: UNK UNK, QD
     Dates: start: 20071203

REACTIONS (16)
  - Pericarditis [Recovering/Resolving]
  - Dry mouth [Unknown]
  - Off label use [Unknown]
  - Blood pressure abnormal [Unknown]
  - Mucous stools [Unknown]
  - Pallor [Recovered/Resolved]
  - Poor quality sleep [Unknown]
  - COVID-19 [Recovered/Resolved]
  - Hyperhidrosis [Unknown]
  - Dizziness [Unknown]
  - Blood pressure increased [Recovering/Resolving]
  - Nasopharyngitis [Recovered/Resolved]
  - Nausea [Unknown]
  - Fatigue [Unknown]
  - Oropharyngeal pain [Unknown]
  - Influenza [Unknown]

NARRATIVE: CASE EVENT DATE: 20230731
